FAERS Safety Report 14772657 (Version 3)
Quarter: 2018Q2

REPORT INFORMATION
  Report Type: Spontaneous
  Country: PT (occurrence: PT)
  Receive Date: 20180418
  Receipt Date: 20180522
  Transmission Date: 20180711
  Serious: Yes (Death, Other)
  Sender: FDA-Public Use
  Company Number: PT-AXELLIA-001579

PATIENT
  Age: 22 Year
  Sex: Male

DRUGS (13)
  1. MORFINA [Concomitant]
     Active Substance: MORPHINE HYDROCHLORIDE
     Dates: start: 20160715, end: 20160717
  2. GABAPENTIN. [Concomitant]
     Active Substance: GABAPENTIN
  3. NOLOTIL (METAMIZOLE MAGNESIUM) [Suspect]
     Active Substance: METAMIZOLE MAGNESIUM
     Indication: OSTEOMYELITIS
     Dosage: 8/8H
     Route: 048
     Dates: start: 20160715, end: 20160717
  4. RIVOTRIL [Concomitant]
     Active Substance: CLONAZEPAM
     Dates: start: 20160715, end: 20160717
  5. PARACETAMOL [Concomitant]
     Active Substance: ACETAMINOPHEN
  6. SERENAL [Concomitant]
     Active Substance: OXAZOLAM
     Dates: start: 20160715, end: 20160717
  7. MIRTAZAPINE. [Concomitant]
     Active Substance: MIRTAZAPINE
  8. CLONAZEPAM. [Concomitant]
     Active Substance: CLONAZEPAM
     Dates: start: 20160715, end: 20160717
  9. HYDROXYZINE [Concomitant]
     Active Substance: HYDROXYZINE HYDROCHLORIDE
  10. VANCOMYCIN [Suspect]
     Active Substance: VANCOMYCIN
     Indication: OSTEOMYELITIS
     Dosage: ALSO RECEIVED AT DOSE OF 250 MG/DAY UNTIL 04-AUG-2016; 8/8H
     Route: 042
     Dates: start: 20160715, end: 20160717
  11. ENOXAPARIN [Concomitant]
     Active Substance: ENOXAPARIN
  12. PIPERACILLIN/TAZOBACTAM [Concomitant]
  13. OXAZEPAM. [Concomitant]
     Active Substance: OXAZEPAM
     Dates: start: 20160715, end: 20160717

REACTIONS (3)
  - Blood creatinine increased [Recovered/Resolved]
  - Death [Fatal]
  - Acute kidney injury [Recovered/Resolved]

NARRATIVE: CASE EVENT DATE: 20160717
